FAERS Safety Report 21549618 (Version 1)
Quarter: 2022Q4

REPORT INFORMATION
  Report Type: Spontaneous
  Country: US (occurrence: None)
  Receive Date: 20221101
  Receipt Date: 20221101
  Transmission Date: 20230112
  Serious: Yes (Hospitalization, Other)
  Sender: FDA-Public Use
  Company Number: None

PATIENT
  Age: 61 Year
  Sex: Male
  Weight: 93.89 kg

DRUGS (12)
  1. REPATHA [Suspect]
     Active Substance: EVOLOCUMAB
     Indication: Blood cholesterol abnormal
     Dosage: FREQUENCY : EVERY OTHER WEEK;?
     Route: 058
     Dates: start: 20220707, end: 20221004
  2. Travoprost Opth Sol [Concomitant]
  3. Clopidogrel (PLAXIV) [Concomitant]
  4. ASPIRIN [Concomitant]
     Active Substance: ASPIRIN
  5. ALPRAZOLAM [Concomitant]
     Active Substance: ALPRAZOLAM
  6. VITAMIN C [Concomitant]
     Active Substance: ASCORBIC ACID
  7. VITAMIN D3 [Concomitant]
     Active Substance: CHOLECALCIFEROL
  8. VITAMIN B12 [Concomitant]
     Active Substance: CYANOCOBALAMIN
  9. PepZinGI [Concomitant]
  10. ZINC [Concomitant]
     Active Substance: ZINC
  11. ZINC-L-CARNOSINE [Concomitant]
  12. CARNOSINE [Concomitant]
     Active Substance: CARNOSINE

REACTIONS (4)
  - Asthenia [None]
  - Fall [None]
  - Gait disturbance [None]
  - Therapy cessation [None]

NARRATIVE: CASE EVENT DATE: 20221002
